FAERS Safety Report 9147223 (Version 1)
Quarter: 2013Q1

REPORT INFORMATION
  Report Type: Spontaneous
  Country: MX (occurrence: None)
  Receive Date: 20130226
  Receipt Date: 20130226
  Transmission Date: 20140127
  Serious: Yes (Death, Other)
  Sender: FDA-Public Use
  Company Number: THQ2013A01357

PATIENT
  Sex: Male

DRUGS (2)
  1. ZACTOS (PIOGLITAZONE HYDROCHLORIDE) [Suspect]
     Indication: TYPE 2 DIABETES MELLITUS
     Dosage: 15  MG   PER  ORAL???/??/2009  - UNK.
     Route: 048
     Dates: end: 2009
  2. UNSPECIFIED VITAMINS (VITAMINS   UNK. - UNK. UNK.  /90003601/) [Concomitant]

REACTIONS (1)
  - Myocardial infarction [None]
